FAERS Safety Report 10018600 (Version 1)
Quarter: 2014Q1

REPORT INFORMATION
  Report Type: Spontaneous
  Country: US (occurrence: None)
  Receive Date: 20140314
  Receipt Date: 20140314
  Transmission Date: 20141002
  Serious: Yes (Other)
  Sender: FDA-Public Use
  Company Number: None

PATIENT
  Age: 29 Year
  Sex: Female
  Weight: 121.56 kg

DRUGS (1)
  1. MIRENA [Suspect]
     Indication: CONTRACEPTION
     Dosage: 1 EVERY 5 YEARS
     Route: 067
     Dates: start: 20130304, end: 20140225

REACTIONS (12)
  - Pelvic pain [None]
  - Emotional disorder [None]
  - Crying [None]
  - Irritability [None]
  - Anxiety [None]
  - Fatigue [None]
  - Weight increased [None]
  - Haemorrhage [None]
  - Muscle spasms [None]
  - Medical device complication [None]
  - Device dislocation [None]
  - Infection [None]
